FAERS Safety Report 9000860 (Version 1)
Quarter: 2013Q1

REPORT INFORMATION
  Report Type: Spontaneous
  Country: US (occurrence: None)
  Receive Date: 20130103
  Receipt Date: 20130103
  Transmission Date: 20140127
  Serious: Yes (Hospitalization)
  Sender: FDA-Public Use
  Company Number: None

PATIENT
  Age: 28 Year
  Sex: Female
  Weight: 70.31 kg

DRUGS (4)
  1. LUTERA [Suspect]
     Indication: CONTRACEPTION
     Dosage: 1 PILL
     Route: 048
     Dates: start: 20121114, end: 20121202
  2. LUTERA [Suspect]
     Indication: POLYCYSTIC OVARIES
     Dosage: 1 PILL
     Route: 048
     Dates: start: 20121114, end: 20121202
  3. ORSYTHIA [Concomitant]
  4. AVIANE [Concomitant]

REACTIONS (6)
  - Migraine [None]
  - Photophobia [None]
  - Hyperacusis [None]
  - Dizziness [None]
  - Headache [None]
  - Nausea [None]
